FAERS Safety Report 20711726 (Version 1)
Quarter: 2022Q2

REPORT INFORMATION
  Report Type: Spontaneous
  Country: US (occurrence: US)
  Receive Date: 20220414
  Receipt Date: 20220414
  Transmission Date: 20220720
  Serious: Yes (Death, Hospitalization, Other)
  Sender: FDA-Public Use
  Company Number: US-PFIZER INC-202200521024

PATIENT
  Age: 73 Year
  Sex: Female
  Weight: 47.619 kg

DRUGS (2)
  1. VFEND [Suspect]
     Active Substance: VORICONAZOLE
     Dosage: 200 MG, 2X/DAY
     Route: 048
  2. VENETOCLAX [Suspect]
     Active Substance: VENETOCLAX
     Dosage: 100 MG, 1X/DAY
     Route: 048

REACTIONS (7)
  - Death [Fatal]
  - Haemarthrosis [Unknown]
  - Peripheral swelling [Unknown]
  - Arthralgia [Unknown]
  - Gait disturbance [Unknown]
  - Fall [Unknown]
  - Acute monocytic leukaemia [Unknown]

NARRATIVE: CASE EVENT DATE: 20220201
